FAERS Safety Report 9543305 (Version 2)
Quarter: 2014Q1

REPORT INFORMATION
  Report Type: Spontaneous
  Country: JP (occurrence: JP)
  Receive Date: 20130923
  Receipt Date: 20140106
  Transmission Date: 20141002
  Serious: Yes (Hospitalization)
  Sender: FDA-Public Use
  Company Number: PHHY2013JP105046

PATIENT
  Age: 86 Year
  Sex: Male

DRUGS (2)
  1. CARBAMAZEPINE [Suspect]
     Indication: TRIGEMINAL NEURALGIA
     Dosage: 600 MG, DAILY
     Route: 048
  2. CARBAMAZEPINE [Suspect]
     Dosage: 400 MG, DAILY
     Route: 048

REACTIONS (6)
  - Immune thrombocytopenic purpura [Unknown]
  - Swelling face [Unknown]
  - Gingival bleeding [Unknown]
  - Chronic obstructive pulmonary disease [Recovering/Resolving]
  - Platelet count decreased [Unknown]
  - Pain [Recovered/Resolved]
